FAERS Safety Report 5520490-0 (Version None)
Quarter: 2007Q4

REPORT INFORMATION
  Report Type: 
  Country: None (occurrence: None)
  Receive Date: 20071119
  Receipt Date: 20071106
  Transmission Date: 20080405
  Serious: Yes (Hospitalization)
  Sender: FDA-Public Use
  Company Number: US-ELI_LILLY_AND_COMPANY-US200711001497

PATIENT
  Age: 81 Year
  Sex: Male

DRUGS (4)
  1. ALIMTA [Suspect]
     Indication: NON-SMALL CELL LUNG CANCER
     Dosage: UNK, UNK
     Dates: start: 20070901
  2. VITAMIN B-12 [Concomitant]
     Indication: VITAMIN SUPPLEMENTATION
     Dates: start: 20070101
  3. FOLIC ACID [Concomitant]
     Indication: VITAMIN SUPPLEMENTATION
     Dates: start: 20070101
  4. DEXAMETHASONE [Concomitant]
     Indication: PROPHYLAXIS
     Dosage: 20 MG, OTHER
     Route: 042
     Dates: start: 20070101

REACTIONS (2)
  - CELLULITIS [None]
  - RASH [None]
